FAERS Safety Report 6164140-1 (Version None)
Quarter: 2009Q2

REPORT INFORMATION
  Report Type: 
  Country: None (occurrence: None)
  Receive Date: 20090422
  Receipt Date: 20090410
  Transmission Date: 20091009
  Serious: Yes (Other)
  Sender: FDA-Public Use
  Company Number: US-PFIZER INC-2009199299

PATIENT
  Sex: Male
  Weight: 66.224 kg

DRUGS (11)
  1. GLUCOTROL XL [Suspect]
     Indication: DIABETES MELLITUS
     Dosage: 10 MG, 2X/DAY
     Route: 048
     Dates: start: 20070101
  2. LISINOPRIL [Suspect]
     Indication: HYPERTENSION
  3. AMLODIPINE [Suspect]
     Indication: HYPERTENSION
     Dates: start: 20090331, end: 20090401
  4. METFORMIN [Concomitant]
  5. LIPITOR [Concomitant]
  6. CELEBREX [Concomitant]
  7. ALPRAZOLAM [Concomitant]
  8. TEMAZEPAM [Concomitant]
  9. VITAMINS [Concomitant]
  10. PRILOSEC [Concomitant]
  11. ACETYLSALICYLIC ACID [Concomitant]

REACTIONS (6)
  - DRUG INEFFECTIVE [None]
  - EYE SWELLING [None]
  - HERPES ZOSTER [None]
  - HYPERTENSION [None]
  - JOINT SWELLING [None]
  - SWELLING FACE [None]
